FAERS Safety Report 8524976-6 (Version None)
Quarter: 2012Q3

REPORT INFORMATION
  Report Type: 
  Country: None (occurrence: None)
  Receive Date: 20120720
  Receipt Date: 20120706
  Transmission Date: 20120928
  Serious: Yes (Other)
  Sender: FDA-Public Use
  Company Number: US-MYLANLABS-2012S1014101

PATIENT
  Age: 32 Year
  Sex: Male

DRUGS (3)
  1. VENLAFAXINE [Suspect]
     Indication: MAJOR DEPRESSION
     Dosage: 150 MG/DAY
     Route: 065
  2. LAMIVUDINE + ZIDOVUDINE [Concomitant]
     Indication: HIV INFECTION
     Route: 065
  3. INDINAVIR [Interacting]
     Indication: HIV INFECTION
     Route: 065

REACTIONS (3)
  - DRUG INTERACTION [None]
  - BLOOD HIV RNA INCREASED [None]
  - VIROLOGIC FAILURE [None]
